FAERS Safety Report 7420908-2 (Version None)
Quarter: 2011Q2

REPORT INFORMATION
  Report Type: 
  Country: None (occurrence: None)
  Receive Date: 20110418
  Receipt Date: 20110411
  Transmission Date: 20111010
  Serious: Yes (Life-Threatening, Hospitalization)
  Sender: FDA-Public Use
  Company Number: B0701621A

PATIENT
  Age: 76 Year
  Sex: Male

DRUGS (12)
  1. GLICLAZIDE [Concomitant]
  2. ISOSORBIDE MONONITRATE [Concomitant]
  3. BISOPROLOL FUMARATE [Concomitant]
  4. PRAVASTATIN SODIUM [Concomitant]
  5. DEXAMETHASONE SODIUM PHOSPHATE [Suspect]
     Indication: PROPHYLAXIS OF NAUSEA AND VOMITING
     Route: 048
     Dates: start: 20110111, end: 20110113
  6. METFORMIN [Concomitant]
  7. ASPIRIN [Concomitant]
  8. AMLODIPINE [Concomitant]
  9. IRBESARTAN [Concomitant]
  10. IRINOTECAN HYDROCHLORIDE [Suspect]
     Indication: COLON CANCER STAGE IV
     Route: 042
     Dates: start: 20110111, end: 20110111
  11. FERROUS SULFATE TAB [Concomitant]
  12. ONDANSETRON HYDROCHLORIDE [Suspect]
     Indication: PROPHYLAXIS OF NAUSEA AND VOMITING
     Route: 042
     Dates: start: 20110111, end: 20110111

REACTIONS (4)
  - VOMITING [None]
  - CHEST DISCOMFORT [None]
  - ACUTE MYOCARDIAL INFARCTION [None]
  - DIARRHOEA [None]
